FAERS Safety Report 17565866 (Version 2)
Quarter: 2020Q2

REPORT INFORMATION
  Report Type: Spontaneous
  Country: JP (occurrence: JP)
  Receive Date: 20200320
  Receipt Date: 20200403
  Transmission Date: 20200713
  Serious: Yes (Death, Hospitalization, Other)
  Sender: FDA-Public Use
  Company Number: JP-FERRINGPH-2020FE01871

PATIENT
  Age: 70 Year
  Sex: Male

DRUGS (9)
  1. GONAX [Suspect]
     Active Substance: DEGARELIX
     Indication: PROSTATE CANCER METASTATIC
     Dosage: 80 MG
     Route: 058
     Dates: start: 20190307, end: 20190403
  2. METHYLPREDNISOLONE. [Concomitant]
     Active Substance: METHYLPREDNISOLONE
     Route: 065
  3. MEROPENEM. [Concomitant]
     Active Substance: MEROPENEM
     Route: 065
  4. PREDNISOLONE. [Concomitant]
     Active Substance: PREDNISOLONE
     Dosage: 5 MG, DAILY
     Route: 048
     Dates: start: 20190307, end: 20190403
  5. GABEXATE MESILATE [Concomitant]
     Active Substance: GABEXATE MESYLATE
     Route: 065
  6. ABIRATERONE ACETATE. [Suspect]
     Active Substance: ABIRATERONE ACETATE
     Indication: PROSTATE CANCER
     Dosage: 1000 MG, DAILY
     Route: 048
     Dates: start: 20190307, end: 20190403
  7. NORADRENALINE ACID TARTRATE ANHYDROUS [Concomitant]
     Active Substance: NOREPINEPHRINE BITARTRATE
  8. GONAX [Suspect]
     Active Substance: DEGARELIX
     Dosage: 240 MG, ONCE/SINGLE
     Route: 058
  9. EPLERENONE. [Concomitant]
     Active Substance: EPLERENONE
     Route: 048

REACTIONS (3)
  - Acute kidney injury [Fatal]
  - Disseminated intravascular coagulation [Fatal]
  - General physical health deterioration [Fatal]

NARRATIVE: CASE EVENT DATE: 20190403
